FAERS Safety Report 14775269 (Version 2)
Quarter: 2019Q2

REPORT INFORMATION
  Report Type: Spontaneous
  Country: US (occurrence: US)
  Receive Date: 20180418
  Receipt Date: 20190402
  Transmission Date: 20190711
  Serious: Yes (Other)
  Sender: FDA-Public Use
  Company Number: US-ASTRAZENECA-2018SE47261

PATIENT
  Age: 18984 Day
  Sex: Male

DRUGS (18)
  1. WARFARIN [Concomitant]
     Active Substance: WARFARIN
  2. NEXIUM [Suspect]
     Active Substance: ESOMEPRAZOLE MAGNESIUM
     Route: 048
     Dates: start: 20100620
  3. NEXIUM 24HR [Suspect]
     Active Substance: ESOMEPRAZOLE MAGNESIUM
     Route: 048
     Dates: start: 2011, end: 2016
  4. TRAMADOL. [Concomitant]
     Active Substance: TRAMADOL
  5. METOPROLOL. [Concomitant]
     Active Substance: METOPROLOL
  6. TRAMADOL. [Concomitant]
     Active Substance: TRAMADOL
  7. HYDROCHLOROTHIAZIDE. [Concomitant]
     Active Substance: HYDROCHLOROTHIAZIDE
  8. LIPITOR [Concomitant]
     Active Substance: ATORVASTATIN CALCIUM
  9. PREVACID [Concomitant]
     Active Substance: LANSOPRAZOLE
  10. TRAMADOL. [Concomitant]
     Active Substance: TRAMADOL
  11. TRAMADOL. [Concomitant]
     Active Substance: TRAMADOL
  12. NEXIUM [Suspect]
     Active Substance: ESOMEPRAZOLE MAGNESIUM
     Route: 048
     Dates: start: 2011, end: 2016
  13. AMOXICILLIN. [Concomitant]
     Active Substance: AMOXICILLIN
  14. GABAPENTIN. [Concomitant]
     Active Substance: GABAPENTIN
  15. ALBUTEROL. [Concomitant]
     Active Substance: ALBUTEROL
  16. PROMETHAZINE [Concomitant]
     Active Substance: PROMETHAZINE\PROMETHAZINE HYDROCHLORIDE
  17. WARFARIN [Concomitant]
     Active Substance: WARFARIN
  18. LANTUS [Concomitant]
     Active Substance: INSULIN GLARGINE

REACTIONS (3)
  - Chronic kidney disease [Unknown]
  - Renal failure [Unknown]
  - Acute kidney injury [Unknown]

NARRATIVE: CASE EVENT DATE: 20110202
